FAERS Safety Report 7783795-9 (Version None)
Quarter: 2011Q3

REPORT INFORMATION
  Report Type: 
  Country: None (occurrence: None)
  Receive Date: 20110928
  Receipt Date: 20110526
  Transmission Date: 20111222
  Serious: No
  Sender: FDA-Public Use
  Company Number: US-BAYER-2011-047146

PATIENT
  Sex: Female

DRUGS (3)
  1. BENADRYL [Interacting]
     Dosage: 3 TABS DOSE UNKNOWN
     Route: 048
  2. ALEVE (CAPLET) [Suspect]
     Indication: HEADACHE
     Dosage: 3 TABS
     Route: 048
  3. MOTRIN [Interacting]
     Dosage: 2 TABS
     Route: 048

REACTIONS (3)
  - DRUG INTERACTION [None]
  - OVERDOSE [None]
  - EUPHORIC MOOD [None]
